FAERS Safety Report 14615314 (Version 1)
Quarter: 2018Q1

REPORT INFORMATION
  Report Type: Spontaneous
  Country: FR (occurrence: FR)
  Receive Date: 20180308
  Receipt Date: 20180308
  Transmission Date: 20180509
  Serious: Yes (Other)
  Sender: FDA-Public Use
  Company Number: FR-MERCK KGAA-2043355

PATIENT
  Age: 55 Year
  Sex: Female
  Weight: 70 kg

DRUGS (1)
  1. NOVOTHYROX [Suspect]
     Active Substance: LEVOTHYROXINE SODIUM
     Indication: THYROID MASS

REACTIONS (18)
  - Vomiting [None]
  - Amnesia [None]
  - Tinnitus [None]
  - Malaise [None]
  - Sleep disorder [None]
  - Decreased interest [None]
  - Flatulence [None]
  - Loss of personal independence in daily activities [None]
  - Fatigue [None]
  - Nausea [None]
  - Dysstasia [None]
  - Arthralgia [None]
  - Sluggishness [None]
  - Headache [None]
  - Dizziness [None]
  - Abdominal pain upper [None]
  - Hyperhidrosis [None]
  - Gait disturbance [None]

NARRATIVE: CASE EVENT DATE: 20170920
